FAERS Safety Report 5659201-7 (Version None)
Quarter: 2008Q1

REPORT INFORMATION
  Report Type: 
  Country: None (occurrence: None)
  Receive Date: 20080311
  Receipt Date: 20070608
  Transmission Date: 20080703
  Serious: No
  Sender: FDA-Public Use
  Company Number: US-BAYER-200711838BCC

PATIENT
  Sex: Female

DRUGS (2)
  1. MIDOL [Suspect]
     Indication: DRUG USE FOR UNKNOWN INDICATION
     Route: 048
     Dates: start: 20070605
  2. ASPIRIN [Concomitant]

REACTIONS (1)
  - NAUSEA [None]
